FAERS Safety Report 24647304 (Version 1)
Quarter: 2024Q4

REPORT INFORMATION
  Report Type: Spontaneous
  Country: FR (occurrence: FR)
  Receive Date: 20241121
  Receipt Date: 20241121
  Transmission Date: 20250114
  Serious: Yes (Disabling)
  Sender: CHEMISCHE FABRIK KREUSSLER
  Company Number: FR-AFSSAPS-GR2024001367

PATIENT
  Age: 56 Year
  Sex: Male

DRUGS (1)
  1. POLIDOCANOL [Suspect]
     Active Substance: POLIDOCANOL
     Indication: Varicose vein
     Dosage: 1.6 ML LIQUID FOR 6 ML FOAM
     Route: 042
     Dates: start: 20241019, end: 20241019

REACTIONS (3)
  - Ischaemic stroke [Recovering/Resolving]
  - Deep vein thrombosis [Recovering/Resolving]
  - Cerebral gas embolism [Recovering/Resolving]

NARRATIVE: CASE EVENT DATE: 20241019
